FAERS Safety Report 7946628-3 (Version None)
Quarter: 2011Q4

REPORT INFORMATION
  Report Type: 
  Country: None (occurrence: None)
  Receive Date: 20111129
  Receipt Date: 20111115
  Transmission Date: 20120403
  Serious: Yes (Hospitalization)
  Sender: FDA-Public Use
  Company Number: JP-WATSON-2011-19360

PATIENT
  Age: 79 Year
  Sex: Male

DRUGS (1)
  1. RAPAFLO [Suspect]
     Indication: DYSURIA
     Dosage: 8 MG, DAILY
     Route: 048
     Dates: start: 20071009

REACTIONS (1)
  - FEMUR FRACTURE [None]
